FAERS Safety Report 7035882-0 (Version None)
Quarter: 2010Q4

REPORT INFORMATION
  Report Type: 
  Country: None (occurrence: None)
  Receive Date: 20101008
  Receipt Date: 20100930
  Transmission Date: 20110411
  Serious: Yes (Other)
  Sender: FDA-Public Use
  Company Number: DE-ROXANE LABORATORIES, INC.-2010-RO-01300RO

PATIENT
  Age: 39 Year
  Sex: Female

DRUGS (5)
  1. LAMOTRIGINE [Suspect]
     Indication: EPILEPSY
  2. LEVETIRACETAM [Suspect]
     Indication: EPILEPSY
  3. LAMICTAL [Suspect]
     Indication: EPILEPSY
     Dosage: 250 MG
  4. VALPROIC ACID [Suspect]
     Indication: EPILEPSY
  5. PREGABALIN [Suspect]
     Indication: EPILEPSY

REACTIONS (1)
  - PARTIAL SEIZURES [None]
